FAERS Safety Report 6642212-2 (Version None)
Quarter: 2010Q1

REPORT INFORMATION
  Report Type: 
  Country: None (occurrence: None)
  Receive Date: 20100319
  Receipt Date: 20100308
  Transmission Date: 20100710
  Serious: Yes (Other)
  Sender: FDA-Public Use
  Company Number: US-PFIZER INC-2010030308

PATIENT
  Sex: Female

DRUGS (2)
  1. LYRICA [Suspect]
     Dosage: UNK
  2. VICODIN [Suspect]
     Dosage: UNK

REACTIONS (5)
  - DECREASED APPETITE [None]
  - DRUG ABUSE [None]
  - DRUG DEPENDENCE [None]
  - FALL [None]
  - WEIGHT INCREASED [None]
